FAERS Safety Report 6867735-2 (Version None)
Quarter: 2010Q3

REPORT INFORMATION
  Report Type: 
  Country: None (occurrence: None)
  Receive Date: 20100722
  Receipt Date: 20100709
  Transmission Date: 20110219
  Serious: Yes (Other)
  Sender: FDA-Public Use
  Company Number: NZ-MYLANLABS-2010S1012190

PATIENT
  Sex: Male

DRUGS (4)
  1. FLUTAMIDE [Suspect]
     Indication: PROSTATE CANCER
     Route: 048
     Dates: start: 20100101
  2. WARFARIN SODIUM [Concomitant]
     Indication: THROMBOSIS
     Route: 048
  3. PRILOSEC [Concomitant]
     Indication: GASTROINTESTINAL DISORDER
     Route: 048
  4. HORMONES NOS [Concomitant]
     Indication: PROSTATE CANCER

REACTIONS (3)
  - DEPRESSION [None]
  - FATIGUE [None]
  - MALAISE [None]
